FAERS Safety Report 18484155 (Version 1)
Quarter: 2020Q4

REPORT INFORMATION
  Report Type: Spontaneous
  Country: IN (occurrence: IN)
  Receive Date: 20201110
  Receipt Date: 20201110
  Transmission Date: 20210114
  Serious: Yes (Hospitalization, Other)
  Sender: FDA-Public Use
  Company Number: IN-ACCORD-207609

PATIENT
  Age: 46 Year
  Sex: Female

DRUGS (1)
  1. CISPLATIN. [Suspect]
     Active Substance: CISPLATIN
     Indication: COLON CANCER

REACTIONS (2)
  - Neurotoxicity [Recovered/Resolved]
  - Posterior reversible encephalopathy syndrome [Recovered/Resolved]
